FAERS Safety Report 13121710 (Version 1)
Quarter: 2017Q1

REPORT INFORMATION
  Report Type: Spontaneous
  Country: US (occurrence: US)
  Receive Date: 20170115
  Receipt Date: 20170115
  Transmission Date: 20170428
  Serious: Yes (Disabling)
  Sender: FDA-Public Use
  Company Number: None

PATIENT
  Age: 52 Year
  Sex: Male
  Weight: 74.25 kg

DRUGS (5)
  1. IBUPROFEN. [Concomitant]
     Active Substance: IBUPROFEN
  2. NAPROXEN-SODIUM [Concomitant]
  3. VENLAFAXINE HCL ER 150 MG CAP AUROBINDO [Suspect]
     Active Substance: VENLAFAXINE HYDROCHLORIDE
     Indication: DEPRESSION
     Route: 048
     Dates: start: 20070101, end: 20170115
  4. NASAL SPRAY [Concomitant]
     Active Substance: UNSPECIFIED INGREDIENT
  5. ASPIRIN. [Concomitant]
     Active Substance: ASPIRIN

REACTIONS (15)
  - Fatigue [None]
  - Stupor [None]
  - Drug ineffective [None]
  - Disorientation [None]
  - Headache [None]
  - Disturbance in attention [None]
  - Product substitution issue [None]
  - Dysstasia [None]
  - Hyperhidrosis [None]
  - Nervousness [None]
  - Bacterial infection [None]
  - Tremor [None]
  - Insomnia [None]
  - Nausea [None]
  - Impaired work ability [None]

NARRATIVE: CASE EVENT DATE: 20161220
